FAERS Safety Report 10023105 (Version 3)
Quarter: 2014Q2

REPORT INFORMATION
  Report Type: Spontaneous
  Country: CA (occurrence: CA)
  Receive Date: 20140320
  Receipt Date: 20140429
  Transmission Date: 20141212
  Serious: Yes (Hospitalization)
  Sender: FDA-Public Use
  Company Number: CA-ROCHE-1367988

PATIENT
  Age: 66 Year
  Sex: Female

DRUGS (8)
  1. XOLAIR [Suspect]
     Indication: ASTHMA
     Route: 058
     Dates: start: 20130716
  2. XOLAIR [Suspect]
     Route: 058
     Dates: start: 20140114
  3. XOLAIR [Suspect]
     Route: 058
     Dates: start: 20140213
  4. ADVAIR [Concomitant]
  5. VENTOLINE [Concomitant]
  6. ALVESCO [Concomitant]
  7. SPIRIVA [Concomitant]
  8. DAXAS [Concomitant]

REACTIONS (4)
  - Asthma [Unknown]
  - Blood pressure increased [Recovered/Resolved]
  - Dyspnoea [Unknown]
  - Malaise [Unknown]
